FAERS Safety Report 12277478 (Version 1)
Quarter: 2016Q2

REPORT INFORMATION
  Report Type: Spontaneous
  Country: US (occurrence: None)
  Receive Date: 20160415
  Receipt Date: 20160415
  Transmission Date: 20160815
  Serious: Yes (Hospitalization)
  Sender: FDA-Public Use
  Company Number: None

PATIENT
  Age: 26 Year
  Sex: Female

DRUGS (4)
  1. PRENATAL [Concomitant]
     Active Substance: VITAMINS
  2. HYDROCODONE [Concomitant]
     Active Substance: HYDROCODONE
  3. MAKENA [Suspect]
     Active Substance: HYDROXYPROGESTERONE CAPROATE
     Indication: PREMATURE LABOUR
     Dosage: 250MG/ML QWK IN THE MUSCLE
     Route: 030
     Dates: start: 20160218
  4. ONDANSETRON [Concomitant]
     Active Substance: ONDANSETRON

REACTIONS (1)
  - Premature labour [None]

NARRATIVE: CASE EVENT DATE: 20160409
